FAERS Safety Report 4277137-3 (Version None)
Quarter: 2004Q1

REPORT INFORMATION
  Report Type: 
  Country: None (occurrence: None)
  Receive Date: 20040120
  Receipt Date: 20040107
  Transmission Date: 20041129
  Serious: Yes (Hospitalization, Other)
  Sender: FDA-Public Use
  Company Number: HQWYE172707JAN04

PATIENT
  Age: 69 Year
  Sex: Male

DRUGS (4)
  1. ADVIL (IBUPROFEN, GEL) [Suspect]
     Indication: SCIATICA
     Dosage: 6 DAY, TOPICAL
     Route: 061
     Dates: start: 20031122, end: 20031127
  2. CELEBREX [Suspect]
     Indication: SCIATICA
     Dosage: ORAL
     Route: 048
     Dates: start: 20031122, end: 20031127
  3. FELDENE [Suspect]
     Indication: SCIATICA
     Dosage: ORAL
     Route: 048
     Dates: start: 20031113, end: 20031121
  4. MOPRAM (OMEPRAZOLE) [Concomitant]

REACTIONS (1)
  - RECTAL HAEMORRHAGE [None]
